FAERS Safety Report 14384112 (Version 4)
Quarter: 2020Q4

REPORT INFORMATION
  Report Type: Spontaneous
  Country: US (occurrence: US)
  Receive Date: 20180115
  Receipt Date: 20201204
  Transmission Date: 20210113
  Serious: No
  Sender: FDA-Public Use
  Company Number: US-PFIZER INC-2018014693

PATIENT
  Age: 60 Year
  Sex: Female

DRUGS (3)
  1. BUPROPION HCL [Suspect]
     Active Substance: BUPROPION HYDROCHLORIDE
     Dosage: UNK
  2. MORPHINE SULFATE. [Suspect]
     Active Substance: MORPHINE SULFATE
     Dosage: UNK
  3. CODEINE [Suspect]
     Active Substance: CODEINE
     Dosage: UNK

REACTIONS (2)
  - Drug hypersensitivity [Unknown]
  - Dizziness [Unknown]
